FAERS Safety Report 26073111 (Version 3)
Quarter: 2025Q4

REPORT INFORMATION
  Report Type: Spontaneous
  Country: JP (occurrence: JP)
  Receive Date: 20251121
  Receipt Date: 20251224
  Transmission Date: 20260118
  Serious: Yes (Death, Hospitalization, Other)
  Sender: GENMAB
  Company Number: JP-GENMAB-2025-03719

PATIENT
  Age: 72 Year
  Sex: Male

DRUGS (4)
  1. EPKINLY [Suspect]
     Active Substance: EPCORITAMAB-BYSP
     Indication: Diffuse large B-cell lymphoma refractory
     Dosage: UNK, SINGLE
     Route: 058
     Dates: start: 20250611, end: 20250611
  2. EPKINLY [Suspect]
     Active Substance: EPCORITAMAB-BYSP
     Dosage: UNK, SINGLE
     Route: 058
     Dates: start: 20250618, end: 20250618
  3. EPKINLY [Suspect]
     Active Substance: EPCORITAMAB-BYSP
     Dosage: UNK, WEEKLY
     Route: 058
     Dates: start: 20250625, end: 2025
  4. EPKINLY [Suspect]
     Active Substance: EPCORITAMAB-BYSP
     Dosage: 48 MILLIGRAM, 1Q2W
     Route: 058
     Dates: start: 2025, end: 20251017

REACTIONS (2)
  - SARS-CoV-2 sepsis [Fatal]
  - COVID-19 [Fatal]

NARRATIVE: CASE EVENT DATE: 20251031
